FAERS Safety Report 5653215-9 (Version None)
Quarter: 2008Q1

REPORT INFORMATION
  Report Type: 
  Country: None (occurrence: None)
  Receive Date: 20080306
  Receipt Date: 20080225
  Transmission Date: 20080703
  Serious: Yes (Life-Threatening, Hospitalization)
  Sender: FDA-Public Use
  Company Number: US-ELI_LILLY_AND_COMPANY-US_020483209

PATIENT
  Age: 15 Year
  Sex: Female

DRUGS (2)
  1. ZYPREXA [Suspect]
     Dosage: 115 MG, UNKNOWN
     Route: 048
  2. TEGRETOL [Concomitant]
     Dosage: UNK, UNKNOWN

REACTIONS (6)
  - ANTICHOLINERGIC SYNDROME [None]
  - COMA [None]
  - DRUG TOXICITY [None]
  - INTENTIONAL OVERDOSE [None]
  - SOMNOLENCE [None]
  - SUICIDE ATTEMPT [None]
